FAERS Safety Report 18864391 (Version 1)
Quarter: 2021Q1

REPORT INFORMATION
  Report Type: Spontaneous
  Country: US (occurrence: US)
  Receive Date: 20210208
  Receipt Date: 20210208
  Transmission Date: 20210420
  Serious: Yes (Congenital Anomaly)
  Sender: FDA-Public Use
  Company Number: None

PATIENT
  Age: 26 Year
  Sex: Female
  Weight: 86.8 kg

DRUGS (15)
  1. TOCILIZUMAB. [Suspect]
     Active Substance: TOCILIZUMAB
     Indication: ACUTE RESPIRATORY DISTRESS SYNDROME
     Dosage: ?          OTHER FREQUENCY:ONCE;?
     Route: 040
     Dates: start: 20210129, end: 20210129
  2. HEPARIN [Concomitant]
     Active Substance: HEPARIN SODIUM
     Dates: start: 20210127, end: 20210201
  3. POLYETHYLENE GLYCOL [Concomitant]
     Active Substance: POLYETHYLENE GLYCOLS
     Dates: start: 20210129, end: 20210205
  4. CEFTRIAXONE. [Concomitant]
     Active Substance: CEFTRIAXONE
     Dates: start: 20210128, end: 20210201
  5. EPOPROSTENOL. [Concomitant]
     Active Substance: EPOPROSTENOL
     Dates: start: 20210128, end: 20210201
  6. FENTANYL. [Concomitant]
     Active Substance: FENTANYL
     Dates: start: 20210127, end: 20210202
  7. PROPOFOL. [Concomitant]
     Active Substance: PROPOFOL
     Dates: start: 20210127, end: 20210131
  8. CISATRACURIUM. [Concomitant]
     Active Substance: CISATRACURIUM
     Dates: start: 20210127, end: 20210131
  9. DEXAMETHASONE. [Concomitant]
     Active Substance: DEXAMETHASONE
     Dates: start: 20210128, end: 20210207
  10. SENNOSIDES. [Concomitant]
     Active Substance: SENNOSIDES
     Dates: start: 20210129, end: 20210205
  11. ACETAMINOPHEN. [Concomitant]
     Active Substance: ACETAMINOPHEN
     Dates: start: 20210128, end: 20210205
  12. REMDESIVIR. [Concomitant]
     Active Substance: REMDESIVIR
     Dates: start: 20210128, end: 20210130
  13. DOCUSATE [Concomitant]
     Active Substance: DOCUSATE
     Dates: start: 20210128, end: 20210205
  14. FAMOTIDINE. [Concomitant]
     Active Substance: FAMOTIDINE
     Dates: start: 20210128, end: 20210205
  15. NOREPINEPHRINE. [Concomitant]
     Active Substance: NOREPINEPHRINE
     Dates: start: 20210127, end: 20210131

REACTIONS (6)
  - Paralysis [None]
  - Foetal death [None]
  - Maternal exposure during pregnancy [None]
  - Foetal exposure during pregnancy [None]
  - Condition aggravated [None]
  - Acute respiratory distress syndrome [None]

NARRATIVE: CASE EVENT DATE: 20210129
